FAERS Safety Report 9322906 (Version 1)
Quarter: 2013Q2

REPORT INFORMATION
  Report Type: Report from Study
  Country: ID (occurrence: ID)
  Receive Date: 20130602
  Receipt Date: 20130602
  Transmission Date: 20140414
  Serious: Yes (Death, Other)
  Sender: FDA-Public Use
  Company Number: PHHY2013ID055084

PATIENT
  Age: 42 Year
  Sex: Female

DRUGS (1)
  1. GLIVEC [Suspect]
     Indication: CHRONIC MYELOID LEUKAEMIA
     Dosage: 1 DF (100MG), QID (1X4)
     Route: 048

REACTIONS (5)
  - Death [Fatal]
  - Haemoglobin decreased [Unknown]
  - Vomiting [Unknown]
  - Nausea [Unknown]
  - White blood cell count abnormal [Unknown]
